FAERS Safety Report 7395865-8 (Version None)
Quarter: 2011Q2

REPORT INFORMATION
  Report Type: 
  Country: None (occurrence: None)
  Receive Date: 20110405
  Receipt Date: 20110331
  Transmission Date: 20111010
  Serious: Yes (Other)
  Sender: FDA-Public Use
  Company Number: FR-BRISTOL-MYERS SQUIBB COMPANY-15649601

PATIENT
  Age: 38 Year
  Sex: Female

DRUGS (4)
  1. LARGACTIL [Suspect]
  2. HEPTAMYL [Suspect]
  3. NOCTRAN [Suspect]
  4. ABILIFY [Suspect]

REACTIONS (2)
  - PREGNANCY [None]
  - ABORTION SPONTANEOUS [None]
